FAERS Safety Report 12536654 (Version 2)
Quarter: 2016Q3

REPORT INFORMATION
  Report Type: Report from Study
  Country: GB (occurrence: GB)
  Receive Date: 20160707
  Receipt Date: 20160831
  Transmission Date: 20161109
  Serious: Yes (Life-Threatening)
  Sender: FDA-Public Use
  Company Number: GB-PFIZER INC-2016319937

PATIENT
  Age: 73 Year
  Sex: Female

DRUGS (13)
  1. BOSUTINIB [Suspect]
     Active Substance: BOSUTINIB
     Dosage: 200 MG, UNK
     Dates: start: 20140210
  2. PLETAL [Concomitant]
     Active Substance: CILOSTAZOL
     Dosage: UNK
  3. BOSUTINIB [Suspect]
     Active Substance: BOSUTINIB
     Dosage: 150 MG, UNK
     Dates: start: 20130701
  4. BOSUTINIB [Suspect]
     Active Substance: BOSUTINIB
     Dosage: 300 MG, UNK
     Dates: start: 20140106
  5. BOSUTINIB [Suspect]
     Active Substance: BOSUTINIB
     Dosage: 250 MG, UNK
     Dates: start: 20150609
  6. BOSUTINIB [Suspect]
     Active Substance: BOSUTINIB
     Dosage: 300 MG, UNK
     Dates: start: 20150728
  7. CANDESARTAN [Concomitant]
     Active Substance: CANDESARTAN
     Dosage: UNK
  8. CARVEDILOL. [Concomitant]
     Active Substance: CARVEDILOL
     Dosage: UNK
  9. BOSUTINIB [Suspect]
     Active Substance: BOSUTINIB
     Dosage: 400 MG, UNK
     Dates: start: 20151021
  10. BOSUTINIB [Suspect]
     Active Substance: BOSUTINIB
     Dosage: 200 MG, UNK
     Dates: start: 20130812
  11. BOSUTINIB [Suspect]
     Active Substance: BOSUTINIB
     Dosage: 100 MG, 1X/DAY
     Dates: start: 20130604
  12. HYDROXYCARBAMIDE [Concomitant]
     Active Substance: HYDROXYUREA
     Dosage: UNK
  13. BOSUTINIB [Suspect]
     Active Substance: BOSUTINIB
     Dosage: 350 MG, UNK
     Dates: start: 20150827

REACTIONS (2)
  - Diarrhoea [Recovered/Resolved]
  - Cardiac failure congestive [Recovering/Resolving]

NARRATIVE: CASE EVENT DATE: 201511
